FAERS Safety Report 10940411 (Version 2)
Quarter: 2015Q2

REPORT INFORMATION
  Report Type: Spontaneous
  Country: US (occurrence: US)
  Receive Date: 20150322
  Receipt Date: 20150524
  Transmission Date: 20150821
  Serious: Yes (Other)
  Sender: FDA-Public Use
  Company Number: US-JNJFOC-20130815467

PATIENT
  Age: 49 Year
  Sex: Male

DRUGS (6)
  1. REOPRO [Suspect]
     Active Substance: ABCIXIMAB
     Indication: ANGIOPLASTY
     Dosage: DRIP;??BOLOUS
     Route: 042
     Dates: start: 20130827, end: 20130827
  2. REOPRO [Suspect]
     Active Substance: ABCIXIMAB
     Indication: ANGIOPLASTY
     Dosage: STRENGTH: 2 MG/ML, 5 ML;??DRIP
     Route: 042
     Dates: start: 20130827, end: 20130827
  3. ASPIRIN. [Concomitant]
     Active Substance: ASPIRIN
     Route: 065
  4. ANGIOMAX [Suspect]
     Active Substance: BIVALIRUDIN
     Indication: PRODUCT USED FOR UNKNOWN INDICATION
     Dosage: BOLUS
     Route: 042
  5. ANGIOMAX [Suspect]
     Active Substance: BIVALIRUDIN
     Indication: PRODUCT USED FOR UNKNOWN INDICATION
     Dosage: DRIP
     Route: 042
  6. PROPOFOL. [Concomitant]
     Active Substance: PROPOFOL
     Route: 065

REACTIONS (3)
  - Vessel puncture site haemorrhage [Recovering/Resolving]
  - Procedural haemorrhage [Recovering/Resolving]
  - Device difficult to use [Unknown]

NARRATIVE: CASE EVENT DATE: 20130827
